FAERS Safety Report 8966859 (Version 4)
Quarter: 2013Q3

REPORT INFORMATION
  Report Type: Report from Study
  Country: JP (occurrence: JP)
  Receive Date: 20121217
  Receipt Date: 20130717
  Transmission Date: 20140515
  Serious: No
  Sender: FDA-Public Use
  Company Number: JP-VERTEX PHARMACEUTICALS INC.-2012-026157

PATIENT
  Age: 54 Year
  Sex: Male

DRUGS (18)
  1. VX-950 (TELAPREVIR) [Suspect]
     Indication: CHRONIC HEPATITIS C
     Dosage: 2250 MG, QD
     Route: 048
     Dates: start: 20120618, end: 20120708
  2. VX-950 (TELAPREVIR) [Suspect]
     Dosage: 1500 MG, QD
     Route: 048
     Dates: start: 20120709, end: 20120820
  3. VX-950 (TELAPREVIR) [Suspect]
     Dosage: 2250 MG, QD
     Route: 048
     Dates: start: 20120820, end: 20120909
  4. REBETOL [Suspect]
     Indication: CHRONIC HEPATITIS C
     Dosage: 1000 MG, QD
     Route: 048
     Dates: start: 20120618, end: 20120923
  5. REBETOL [Suspect]
     Dosage: 800 MG, QD
     Route: 048
     Dates: start: 20120924, end: 20121105
  6. REBETOL [Suspect]
     Dosage: 600 MG, QD
     Route: 048
     Dates: start: 20121106, end: 20121118
  7. PEGINTRON [Suspect]
     Indication: CHRONIC HEPATITIS C
     Dosage: 1.0 ?G/KG, QW
     Route: 058
     Dates: start: 20120618, end: 20120702
  8. PEGINTRON [Suspect]
     Dosage: 0.6 ?G/KG, QW
     Route: 058
     Dates: start: 20120709
  9. PEGINTRON [Suspect]
     Dosage: 0.75 ?G/KG, QW
     Route: 058
     Dates: end: 20121105
  10. BLOPRESS [Concomitant]
     Dosage: 4 MG, QD
     Route: 048
  11. AMARYL [Concomitant]
     Dosage: 2 MG, QD
     Route: 048
  12. AMARYL [Concomitant]
     Dosage: 1 MG, QD
     Route: 048
  13. ZYLORIC [Concomitant]
     Dosage: 200 MG, QD
     Route: 048
     Dates: start: 20120723
  14. PARIET [Concomitant]
     Dosage: 10 MG, QD
     Route: 048
  15. URSO [Concomitant]
     Dosage: 600 MG, QD
     Route: 048
  16. MYSER [Concomitant]
     Dosage: UNK
     Route: 061
     Dates: start: 20120619, end: 20120710
  17. LIDOMEX [Concomitant]
     Dosage: UNK
     Route: 061
     Dates: start: 20120621, end: 20120710
  18. ANTEBATE [Concomitant]
     Dosage: UNK
     Route: 061
     Dates: start: 20120621, end: 20120710

REACTIONS (1)
  - Palpitations [Recovered/Resolved]
